FAERS Safety Report 6105804-5 (Version None)
Quarter: 2009Q1

REPORT INFORMATION
  Report Type: 
  Country: None (occurrence: None)
  Receive Date: 20090305
  Receipt Date: 20090305
  Transmission Date: 20090719
  Serious: Yes (Other)
  Sender: FDA-Public Use
  Company Number: None

PATIENT
  Sex: Female
  Weight: 70.3075 kg

DRUGS (2)
  1. BUDEPRION XL 300 MG TEVA [Suspect]
     Indication: DEPRESSION
     Dosage: 300 MG ONCE DAILY PO
     Route: 048
     Dates: start: 20070203, end: 20070930
  2. SYNTHROID [Concomitant]

REACTIONS (2)
  - DEPRESSION [None]
  - THERAPEUTIC RESPONSE UNEXPECTED WITH DRUG SUBSTITUTION [None]
